FAERS Safety Report 22241599 (Version 4)
Quarter: 2023Q2

REPORT INFORMATION
  Report Type: Report from Study
  Country: RU (occurrence: RU)
  Receive Date: 20230421
  Receipt Date: 20230606
  Transmission Date: 20230722
  Serious: Yes (Death, Hospitalization, Other)
  Sender: FDA-Public Use
  Company Number: RU-002147023-NVSC2023RU089943

PATIENT
  Age: 45 Year
  Sex: Female
  Weight: 67 kg

DRUGS (8)
  1. KISQALI FEMARA CO-PACK [Suspect]
     Active Substance: LETROZOLE\RIBOCICLIB
     Indication: Breast cancer
     Dosage: 400 MG (21 DAYS SCHEDULED WITH 7 DAYS OF BREAK)
     Route: 048
     Dates: start: 20230210, end: 20230302
  2. CALCIUM GLUCONATE [Concomitant]
     Active Substance: CALCIUM GLUCONATE
     Indication: Product used for unknown indication
     Dosage: 1000 MG, QD
     Route: 042
     Dates: start: 20230330
  3. METOCLOPRAMIDE [Concomitant]
     Active Substance: METOCLOPRAMIDE
     Indication: Product used for unknown indication
     Dosage: 10 MG, QD
     Route: 042
     Dates: start: 20230330
  4. ADEMETIONINE [Concomitant]
     Active Substance: ADEMETIONINE
     Indication: Product used for unknown indication
     Dosage: 400 MG, QD
     Route: 042
     Dates: start: 20230330
  5. SPIRONOLACTONE [Concomitant]
     Active Substance: SPIRONOLACTONE
     Indication: Product used for unknown indication
     Dosage: 50 MG, QD
     Route: 048
     Dates: start: 20230330, end: 20230331
  6. OMEPRAZOLE [Concomitant]
     Active Substance: OMEPRAZOLE
     Indication: Product used for unknown indication
     Dosage: 20 MG, QD
     Route: 048
     Dates: start: 20230330
  7. ETHAMSYLATE [Concomitant]
     Active Substance: ETHAMSYLATE
     Indication: Product used for unknown indication
     Dosage: 250 MG, QD
     Route: 042
     Dates: start: 20230330
  8. DEXAMETHASONE [Concomitant]
     Active Substance: DEXAMETHASONE
     Indication: Product used for unknown indication
     Dosage: 12 MG, QD
     Route: 042
     Dates: start: 20230330, end: 20230331

REACTIONS (6)
  - Hepatic failure [Fatal]
  - Ascites [Fatal]
  - Fatigue [Fatal]
  - Nausea [Fatal]
  - Oedema peripheral [Fatal]
  - Decreased appetite [Fatal]

NARRATIVE: CASE EVENT DATE: 20230307
